FAERS Safety Report 5518244-4 (Version None)
Quarter: 2007Q4

REPORT INFORMATION
  Report Type: 
  Country: None (occurrence: None)
  Receive Date: 20071115
  Receipt Date: 20071106
  Transmission Date: 20080405
  Serious: Yes (Other)
  Sender: FDA-Public Use
  Company Number: A0676441A

PATIENT
  Age: 58 Year
  Sex: Female
  Weight: 95.5 kg

DRUGS (1)
  1. LAPATINIB [Suspect]
     Indication: BREAST CANCER
     Dosage: 1500MG PER DAY
     Route: 048
     Dates: start: 20070307

REACTIONS (9)
  - DIARRHOEA [None]
  - FATIGUE [None]
  - HEPATIC FAILURE [None]
  - HEPATOTOXICITY [None]
  - JAUNDICE [None]
  - NAUSEA [None]
  - PYREXIA [None]
  - VOMITING [None]
  - WEIGHT DECREASED [None]
